FAERS Safety Report 5213192-1 (Version None)
Quarter: 2007Q1

REPORT INFORMATION
  Report Type: 
  Country: None (occurrence: None)
  Receive Date: 20070119
  Receipt Date: 20070108
  Transmission Date: 20070707
  Serious: Yes (Hospitalization)
  Sender: FDA-Public Use
  Company Number: FR-GLAXOSMITHKLINE-B0453678A

PATIENT
  Age: 70 Year
  Sex: Female
  Weight: 69 kg

DRUGS (5)
  1. ZELITREX [Suspect]
     Indication: HERPES VIRUS INFECTION
     Route: 048
     Dates: start: 20061206, end: 20061211
  2. DOLIPRANE [Suspect]
     Dosage: 1G THREE TIMES PER DAY
     Route: 048
  3. PARACETAMOL CODEINE [Suspect]
     Dosage: 1TAB PER DAY
     Route: 048
  4. NEXIUM [Suspect]
     Indication: GASTRIC ULCER
     Dosage: 40MG PER DAY
     Route: 048
  5. AVLOCARDYL [Suspect]
     Indication: ESSENTIAL HYPERTENSION
     Dosage: 40MG TWICE PER DAY
     Route: 048
     Dates: end: 20061206

REACTIONS (8)
  - ABDOMINAL PAIN [None]
  - ABDOMINAL PAIN UPPER [None]
  - CEREBELLAR SYNDROME [None]
  - CHILLS [None]
  - DIARRHOEA [None]
  - DIZZINESS [None]
  - HYPERHIDROSIS [None]
  - VOMITING [None]
